FAERS Safety Report 23207734 (Version 2)
Quarter: 2023Q4

REPORT INFORMATION
  Report Type: Spontaneous
  Country: JP (occurrence: JP)
  Receive Date: 20231120
  Receipt Date: 20231211
  Transmission Date: 20240109
  Serious: Yes (Death, Other)
  Sender: FDA-Public Use
  Company Number: JP-SA-2023SA358334

PATIENT
  Age: 70 Year
  Sex: Male

DRUGS (3)
  1. OXALIPLATIN [Suspect]
     Active Substance: OXALIPLATIN
     Indication: Colon cancer
     Dosage: UNK
  2. BEVACIZUMAB [Suspect]
     Active Substance: BEVACIZUMAB
     Indication: Colon cancer
     Dosage: UNK
  3. CAPECITABINE [Suspect]
     Active Substance: CAPECITABINE
     Indication: Colon cancer
     Dosage: UNK

REACTIONS (9)
  - Nephrotic syndrome [Fatal]
  - Oedema peripheral [Fatal]
  - Febrile neutropenia [Fatal]
  - Depressed level of consciousness [Fatal]
  - Renal failure [Fatal]
  - Pneumonia [Fatal]
  - Henoch-Schonlein purpura [Fatal]
  - Petechiae [Fatal]
  - Blood pressure decreased [Fatal]
